FAERS Safety Report 9332126 (Version 16)
Quarter: 2014Q2

REPORT INFORMATION
  Report Type: Report from Study
  Country: CA (occurrence: CA)
  Receive Date: 20130606
  Receipt Date: 20140418
  Transmission Date: 20141212
  Serious: Yes (Hospitalization, Other)
  Sender: FDA-Public Use
  Company Number: CA-ROCHE-1100157

PATIENT
  Age: 79 Year
  Sex: Female
  Weight: 68 kg

DRUGS (8)
  1. ACTEMRA [Suspect]
     Indication: RHEUMATOID ARTHRITIS
     Dosage: LAST INFUSION DATE 20/SEP/2013
     Route: 042
     Dates: start: 20111220
  2. ACTEMRA [Suspect]
     Route: 042
     Dates: start: 20120319
  3. ACTEMRA [Suspect]
     Route: 042
     Dates: start: 20120709
  4. ACTEMRA [Suspect]
     Route: 042
     Dates: start: 20130823
  5. DIPHENHYDRAMINE HCL [Suspect]
     Indication: PREMEDICATION
     Route: 048
     Dates: start: 20130308, end: 20130624
  6. PREDNISONE [Concomitant]
     Indication: PRODUCT USED FOR UNKNOWN INDICATION
  7. SOTALOL [Concomitant]
     Indication: PRODUCT USED FOR UNKNOWN INDICATION
  8. ACETAMINOPHEN [Concomitant]
     Indication: PREMEDICATION
     Route: 048
     Dates: start: 20130308

REACTIONS (19)
  - Heart rate decreased [Unknown]
  - Bradycardia [Unknown]
  - Weight fluctuation [Recovering/Resolving]
  - Amnesia [Not Recovered/Not Resolved]
  - Nasopharyngitis [Not Recovered/Not Resolved]
  - Pneumonia [Not Recovered/Not Resolved]
  - Arthralgia [Not Recovered/Not Resolved]
  - Blood pressure increased [Not Recovered/Not Resolved]
  - Chest pain [Not Recovered/Not Resolved]
  - Dizziness [Not Recovered/Not Resolved]
  - Asthenia [Not Recovered/Not Resolved]
  - Cough [Not Recovered/Not Resolved]
  - Influenza [Unknown]
  - Hypertension [Unknown]
  - Malaise [Unknown]
  - Cystitis [Recovered/Resolved]
  - Productive cough [Recovered/Resolved]
  - Pain [Not Recovered/Not Resolved]
  - Influenza like illness [Unknown]
